FAERS Safety Report 24833477 (Version 1)
Quarter: 2025Q1

REPORT INFORMATION
  Report Type: Spontaneous
  Country: US (occurrence: US)
  Receive Date: 20250112
  Receipt Date: 20250112
  Transmission Date: 20250408
  Serious: Yes (Other)
  Sender: GLENMARK
  Company Number: US-GLENMARK PHARMACEUTICALS-2025GMK096931

PATIENT

DRUGS (1)
  1. SEVELAMER HYDROCHLORIDE [Suspect]
     Active Substance: SEVELAMER HYDROCHLORIDE
     Indication: Blood phosphorus increased
     Dosage: 1600 MILLIGRAM, TID WITH MEAL
     Route: 065

REACTIONS (2)
  - Crystal deposit intestine [Unknown]
  - Large intestinal ulcer haemorrhage [Recovering/Resolving]
